FAERS Safety Report 7894002-0 (Version None)
Quarter: 2011Q4

REPORT INFORMATION
  Report Type: 
  Country: None (occurrence: None)
  Receive Date: 20111104
  Receipt Date: 20111102
  Transmission Date: 20120403
  Serious: No
  Sender: FDA-Public Use
  Company Number: US-PFIZER INC-2011269444

PATIENT
  Sex: Female
  Weight: 78.005 kg

DRUGS (4)
  1. EFFEXOR XR [Suspect]
     Indication: HOT FLUSH
  2. VALTREX [Concomitant]
     Indication: ORAL HERPES
     Dosage: 500 MG, DAILY
  3. EFFEXOR XR [Suspect]
     Indication: DEPRESSION
  4. EFFEXOR XR [Suspect]
     Indication: MENOPAUSAL SYMPTOMS
     Dosage: 150 MG, DAILY
     Route: 048
     Dates: start: 20090101, end: 20111030

REACTIONS (9)
  - DYSPHONIA [None]
  - NAUSEA [None]
  - INFLUENZA [None]
  - MALAISE [None]
  - DEPRESSED MOOD [None]
  - OROPHARYNGEAL PAIN [None]
  - FATIGUE [None]
  - EYE DISORDER [None]
  - COUGH [None]
